FAERS Safety Report 8311294-4 (Version None)
Quarter: 2012Q2

REPORT INFORMATION
  Report Type: 
  Country: None (occurrence: None)
  Receive Date: 20120425
  Receipt Date: 20120418
  Transmission Date: 20120825
  Serious: Yes (Hospitalization, Other)
  Sender: FDA-Public Use
  Company Number: AR-GLAXOSMITHKLINE-A0969337A

PATIENT
  Age: 48 Year
  Sex: Female

DRUGS (1)
  1. PROMACTA [Suspect]
     Indication: PRODUCT USED FOR UNKNOWN INDICATION
     Dosage: 50MG UNKNOWN
     Route: 065
     Dates: start: 20120224, end: 20120302

REACTIONS (6)
  - ACUTE MYOCARDIAL INFARCTION [None]
  - PERIPHERAL SENSORY NEUROPATHY [None]
  - POLYNEUROPATHY [None]
  - CARDIOGENIC SHOCK [None]
  - LUPUS ENDOCARDITIS [None]
  - MITRAL VALVE INCOMPETENCE [None]
